FAERS Safety Report 11087697 (Version 1)
Quarter: 2015Q2

REPORT INFORMATION
  Report Type: Spontaneous
  Country: US (occurrence: None)
  Receive Date: 20150501
  Receipt Date: 20150501
  Transmission Date: 20150821
  Serious: Yes (Life-Threatening)
  Sender: FDA-Public Use
  Company Number: None

PATIENT
  Age: 66 Year
  Sex: Female

DRUGS (2)
  1. AZITHROMYCIN [Suspect]
     Active Substance: AZITHROMYCIN ANHYDROUS
  2. FAMOTIDINE. [Concomitant]
     Active Substance: FAMOTIDINE

REACTIONS (5)
  - Cardio-respiratory arrest [None]
  - Unresponsive to stimuli [None]
  - Ventricular fibrillation [None]
  - Torsade de pointes [None]
  - Ventricular tachycardia [None]

NARRATIVE: CASE EVENT DATE: 20150328
